FAERS Safety Report 5533062-9 (Version None)
Quarter: 2007Q4

REPORT INFORMATION
  Report Type: 
  Country: None (occurrence: None)
  Receive Date: 20071204
  Receipt Date: 20071203
  Transmission Date: 20080405
  Serious: Yes (Other)
  Sender: FDA-Public Use
  Company Number: A0697083A

PATIENT
  Sex: Female

DRUGS (3)
  1. NICOTINE [Suspect]
     Indication: SMOKING CESSATION THERAPY
     Route: 002
  2. SOLIAN [Suspect]
     Indication: DRUG USE FOR UNKNOWN INDICATION
  3. NICOTINE [Suspect]
     Indication: SMOKING CESSATION THERAPY
     Route: 055

REACTIONS (3)
  - DRUG INTERACTION [None]
  - HALLUCINATION, AUDITORY [None]
  - OVERDOSE [None]
